FAERS Safety Report 10153465 (Version 1)
Quarter: 2014Q2

REPORT INFORMATION
  Report Type: Spontaneous
  Country: US (occurrence: US)
  Receive Date: 20140505
  Receipt Date: 20140505
  Transmission Date: 20141212
  Serious: Yes (Other)
  Sender: FDA-Public Use
  Company Number: US-ROXANE LABORATORIES, INC.-2014-RO-00687RO

PATIENT
  Age: 63 Year
  Sex: Female

DRUGS (2)
  1. PREDNISONE [Suspect]
     Indication: HYPERSENSITIVITY
     Dosage: 120 MG
     Route: 048
     Dates: start: 20140414, end: 20140420
  2. PREDNISONE [Suspect]
     Dosage: 80 MG
     Route: 048
     Dates: start: 20140421

REACTIONS (4)
  - Palpitations [Recovered/Resolved]
  - Blood pressure increased [Recovered/Resolved]
  - Weight increased [Not Recovered/Not Resolved]
  - Erythema [Not Recovered/Not Resolved]
